FAERS Safety Report 4467957-4 (Version None)
Quarter: 2004Q4

REPORT INFORMATION
  Report Type: 
  Country: None (occurrence: None)
  Receive Date: 20041007
  Receipt Date: 20040928
  Transmission Date: 20050328
  Serious: Yes (Hospitalization)
  Sender: FDA-Public Use
  Company Number: FR-JNJFOC-20040900961

PATIENT
  Sex: Male
  Weight: 70 kg

DRUGS (7)
  1. RISPERDAL [Suspect]
     Indication: ACUTE PSYCHOSIS
     Route: 049
  2. HALDOL [Suspect]
     Indication: AGITATION
     Route: 049
  3. TERCIAN [Concomitant]
     Indication: ACUTE PSYCHOSIS
     Dosage: DOSE=TABLET
     Route: 065
  4. LEVOMEPROMAZINE [Concomitant]
     Indication: DELUSIONAL DISORDER, UNSPECIFIED TYPE
  5. RIVOTRIL [Concomitant]
     Route: 030
  6. TRANXENE [Concomitant]
     Route: 030
  7. VALIUM [Concomitant]

REACTIONS (4)
  - AGITATION [None]
  - ALANINE AMINOTRANSFERASE INCREASED [None]
  - BLOOD CREATINE PHOSPHOKINASE INCREASED [None]
  - RHABDOMYOLYSIS [None]
